FAERS Safety Report 7107601-0 (Version None)
Quarter: 2010Q4

REPORT INFORMATION
  Report Type: 
  Country: None (occurrence: None)
  Receive Date: 20101117
  Receipt Date: 20101108
  Transmission Date: 20110411
  Serious: Yes (Other)
  Sender: FDA-Public Use
  Company Number: US-US-EMD SERONO, INC.-7026614

PATIENT
  Sex: Female

DRUGS (1)
  1. REBIF [Suspect]
     Indication: MULTIPLE SCLEROSIS
     Route: 058
     Dates: start: 20080618

REACTIONS (4)
  - EMOTIONAL DISTRESS [None]
  - FATIGUE [None]
  - MACULAR DEGENERATION [None]
  - OPTIC NEURITIS [None]
